FAERS Safety Report 10361313 (Version 1)
Quarter: 2014Q3

REPORT INFORMATION
  Report Type: Report from Study
  Country: US (occurrence: US)
  Receive Date: 20140804
  Receipt Date: 20140804
  Transmission Date: 20150326
  Serious: Yes (Other)
  Sender: FDA-Public Use
  Company Number: US-BAXTER-2014BAX043842

PATIENT
  Sex: Female

DRUGS (1)
  1. GAMMAGARD LIQUID [Suspect]
     Active Substance: HUMAN IMMUNOGLOBULIN G
     Indication: PRODUCT USED FOR UNKNOWN INDICATION
     Route: 042

REACTIONS (6)
  - Chronic lymphocytic leukaemia [Unknown]
  - Post procedural haemorrhage [Unknown]
  - Hypersensitivity [Unknown]
  - Anxiety [Unknown]
  - Drug hypersensitivity [Unknown]
  - Blood immunoglobulin A decreased [Unknown]
